FAERS Safety Report 19094351 (Version 1)
Quarter: 2021Q2

REPORT INFORMATION
  Report Type: Spontaneous
  Country: NL (occurrence: NL)
  Receive Date: 20210406
  Receipt Date: 20210406
  Transmission Date: 20210717
  Serious: Yes (Death, Other)
  Sender: FDA-Public Use
  Company Number: NL-SUN PHARMACEUTICAL INDUSTRIES LTD-2021RR-289915

PATIENT
  Age: 45 Year
  Sex: Male
  Weight: 83.5 kg

DRUGS (8)
  1. OLANZAPINE. [Suspect]
     Active Substance: OLANZAPINE
     Indication: HUNTINGTON^S DISEASE
     Dosage: 3X PER DAG 1 TABLET
     Route: 065
     Dates: start: 2017
  2. PARACETAMOL TABLET  500MG / BRAND NAME NOT SPECIFIEDPARACETAMOL TAB... [Concomitant]
     Indication: PRODUCT USED FOR UNKNOWN INDICATION
     Dosage: 500MG 2DD1 TABLET ()
     Route: 065
  3. NORTRIPTYLINE TABLET 25MG / NORTRILEN TABLET 25MGNORTRILEN TABLET 2... [Concomitant]
     Indication: PRODUCT USED FOR UNKNOWN INDICATION
     Dosage: 25MG 1DD1 ()
     Route: 065
  4. OXAZEPAM TABLET 10MG / BRAND NAME NOT SPECIFIEDOXAZEPAM TABLET 10MG [Concomitant]
     Indication: PRODUCT USED FOR UNKNOWN INDICATION
     Dosage: TABLET, 10MG, 09H 1 TABLET; 20H 2 TABLETTEN, ZN NOG 1 TABLET EXTRA ()
     Route: 065
  5. ZUCLOPENTIXOL TABLET 10MG / CISORDINOL TABLET 10MGCISORDINOL TABLET... [Concomitant]
     Indication: PRODUCT USED FOR UNKNOWN INDICATION
     Dosage: 10MG TABLET 3X DAAGS 1 TABLET ()
     Route: 065
  6. COLECALCIFEROL DRANK 100.000IE/ML / D?CURA DRANK 100000IE AMPUL 1ML... [Concomitant]
     Indication: PRODUCT USED FOR UNKNOWN INDICATION
     Dosage: DRANK, 100000 IE/ML (EENHEDEN PER MILLILITER) ()
     Route: 065
  7. MACROGOL/ZOUTEN PDR V DRANK (MOVIC/MOLAX/LAXT/GEN) / MOVICOLON POED... [Concomitant]
     Indication: PRODUCT USED FOR UNKNOWN INDICATION
     Dosage: POEDER VOOR DRANK ()
     Route: 065
  8. CITALOPRAM TABLET OMHULD 20MG / BRAND NAME NOT SPECIFIEDCITALOPRAM ... [Concomitant]
     Indication: PRODUCT USED FOR UNKNOWN INDICATION
     Dosage: OMHULDE TABLET, 20 MG (MILLIGRAM) ()
     Route: 065

REACTIONS (1)
  - Embolism [Fatal]

NARRATIVE: CASE EVENT DATE: 20210304
